FAERS Safety Report 8490925-2 (Version None)
Quarter: 2012Q3

REPORT INFORMATION
  Report Type: 
  Country: None (occurrence: None)
  Receive Date: 20120706
  Receipt Date: 20120629
  Transmission Date: 20120928
  Serious: Yes (Other)
  Sender: FDA-Public Use
  Company Number: RU-GE HEALTHCARE MEDICAL DIAGNOSTICS-OMPQ-NO-1207S-0703

PATIENT
  Age: 71 Year
  Sex: Female
  Weight: 80 kg

DRUGS (1)
  1. OMNIPAQUE 140 [Suspect]
     Indication: GOITRE
     Route: 042
     Dates: start: 20120627, end: 20120627

REACTIONS (5)
  - FEAR [None]
  - CONVERSION DISORDER [None]
  - MALAISE [None]
  - RETROGRADE AMNESIA [None]
  - HYPERTENSIVE CRISIS [None]
